FAERS Safety Report 9661344 (Version 3)
Quarter: 2013Q4

REPORT INFORMATION
  Report Type: Spontaneous
  Country: IT (occurrence: FR)
  Receive Date: 20131031
  Receipt Date: 20131213
  Transmission Date: 20140711
  Serious: Yes (Death, Hospitalization)
  Sender: FDA-Public Use
  Company Number: FR-FRI-1000050699

PATIENT
  Age: 83 Year
  Sex: Female

DRUGS (5)
  1. NEBIVOLOL [Suspect]
     Route: 048
     Dates: end: 20131005
  2. ARIMIDEX [Suspect]
     Route: 048
     Dates: start: 2010, end: 20131005
  3. COVERSYL [Suspect]
     Route: 048
     Dates: end: 20131005
  4. FUROSEMIDE [Suspect]
     Route: 048
     Dates: end: 20131005
  5. THYROXINE [Concomitant]
     Route: 048

REACTIONS (1)
  - Hepatitis [Fatal]
